FAERS Safety Report 13701696 (Version 1)
Quarter: 2017Q2

REPORT INFORMATION
  Report Type: Spontaneous
  Country: US (occurrence: US)
  Receive Date: 20170629
  Receipt Date: 20170629
  Transmission Date: 20170830
  Serious: Yes (Hospitalization)
  Sender: FDA-Public Use
  Company Number: None

PATIENT
  Age: 57 Year
  Sex: Male

DRUGS (2)
  1. HEPARIN [Suspect]
     Active Substance: HEPARIN SODIUM
     Indication: ATRIAL FIBRILLATION
     Route: 042
     Dates: start: 20170203, end: 20170217
  2. HEPARIN [Suspect]
     Active Substance: HEPARIN SODIUM
     Indication: MITRAL VALVE REPLACEMENT
     Route: 042
     Dates: start: 20170203, end: 20170217

REACTIONS (2)
  - Heparin-induced thrombocytopenia [None]
  - Deep vein thrombosis [None]

NARRATIVE: CASE EVENT DATE: 20170216
